FAERS Safety Report 9416706 (Version 1)
Quarter: 2013Q3

REPORT INFORMATION
  Report Type: Spontaneous
  Country: US (occurrence: None)
  Receive Date: 20130722
  Receipt Date: 20130722
  Transmission Date: 20140515
  Serious: Yes (Hospitalization)
  Sender: FDA-Public Use
  Company Number: DAV-AE-CLO-13-05

PATIENT
  Age: 26 Year
  Sex: Male

DRUGS (1)
  1. CLONIDINE [Suspect]
     Indication: DETOXIFICATION

REACTIONS (2)
  - Pulseless electrical activity [None]
  - Necrotising fasciitis [None]
